FAERS Safety Report 26208589 (Version 1)
Quarter: 2025Q4

REPORT INFORMATION
  Report Type: Spontaneous
  Country: US (occurrence: None)
  Receive Date: 20251227
  Receipt Date: 20251227
  Transmission Date: 20260117
  Serious: Yes (unspecified)
  Sender: FDA-CTU
  Company Number: None

PATIENT
  Age: 53 Year
  Sex: Male
  Weight: 85.5 kg

DRUGS (7)
  1. TRAMADOL [Suspect]
     Active Substance: TRAMADOL
     Indication: Hip arthroplasty
     Dates: start: 20251202, end: 20251225
  2. LISINOPRIL [Concomitant]
     Active Substance: LISINOPRIL
  3. CELEBREX [Concomitant]
     Active Substance: CELECOXIB
  4. NICOTINE [Concomitant]
     Active Substance: NICOTINE
  5. probiotic, [Concomitant]
  6. asprin 81mg [Concomitant]
  7. VITAMINS [Concomitant]
     Active Substance: VITAMINS

REACTIONS (4)
  - Constipation [None]
  - Blister [None]
  - Urine abnormality [None]
  - Haematochezia [None]

NARRATIVE: CASE EVENT DATE: 20251224
